FAERS Safety Report 7652581-2 (Version None)
Quarter: 2011Q3

REPORT INFORMATION
  Report Type: 
  Country: None (occurrence: None)
  Receive Date: 20110803
  Receipt Date: 20110729
  Transmission Date: 20111222
  Serious: Yes (Other)
  Sender: FDA-Public Use
  Company Number: TH-ROXANE LABORATORIES, INC.-2011-RO-01084RO

PATIENT
  Age: 7 Year
  Sex: Male

DRUGS (1)
  1. IMIPRAMINE PAMOATE [Suspect]
     Indication: NEUROGENIC BLADDER
     Route: 048

REACTIONS (1)
  - SOMNOLENCE [None]
